FAERS Safety Report 6445157-6 (Version None)
Quarter: 2009Q4

REPORT INFORMATION
  Report Type: 
  Country: None (occurrence: None)
  Receive Date: 20091117
  Receipt Date: 20091117
  Transmission Date: 20100525
  Serious: Yes (Life-Threatening, Hospitalization)
  Sender: FDA-Public Use
  Company Number: None

PATIENT
  Sex: Male
  Weight: 72.5755 kg

DRUGS (2)
  1. ZOLOFT [Suspect]
     Indication: DEPRESSION
  2. EFFEXOR [Suspect]
     Indication: DEPRESSION

REACTIONS (4)
  - APPARENT DEATH [None]
  - DEPRESSION SUICIDAL [None]
  - HYPOTHERMIA [None]
  - NEAR DROWNING [None]
